FAERS Safety Report 7577625-8 (Version None)
Quarter: 2011Q2

REPORT INFORMATION
  Report Type: 
  Country: None (occurrence: None)
  Receive Date: 20110621
  Receipt Date: 20110606
  Transmission Date: 20111010
  Serious: Yes (Other)
  Sender: FDA-Public Use
  Company Number: 2011MA006867

PATIENT
  Age: 52 Year
  Sex: Female

DRUGS (2)
  1. RISPERIDONE [Suspect]
     Indication: PSYCHOTIC DISORDER
     Dosage: 12 MG;QD
  2. ZIPRASIDONE HYDROCHLORIDE [Concomitant]

REACTIONS (6)
  - NEUROLEPTIC MALIGNANT SYNDROME [None]
  - MASKED FACIES [None]
  - PULSE ABNORMAL [None]
  - MUSCLE RIGIDITY [None]
  - LEUKOCYTOSIS [None]
  - ALTERED STATE OF CONSCIOUSNESS [None]
